FAERS Safety Report 9397231 (Version 2)
Quarter: 2013Q3

REPORT INFORMATION
  Report Type: Spontaneous
  Country: DE (occurrence: DE)
  Receive Date: 20130712
  Receipt Date: 20130722
  Transmission Date: 20140515
  Serious: Yes (Life-Threatening, Hospitalization, Disabling)
  Sender: FDA-Public Use
  Company Number: DE-JNJFOC-20130705730

PATIENT
  Age: 83 Year
  Sex: Male
  Weight: 85 kg

DRUGS (16)
  1. XARELTO [Suspect]
     Indication: CEREBROVASCULAR ACCIDENT PROPHYLAXIS
     Dosage: 1-0-0
     Route: 048
     Dates: start: 20130306, end: 20130524
  2. XARELTO [Suspect]
     Indication: ATRIAL FIBRILLATION
     Dosage: 1-0-0
     Route: 048
     Dates: start: 20130306, end: 20130524
  3. VERAPAMIL [Concomitant]
     Dosage: 1-0-1
     Route: 065
  4. CITALOPRAM [Concomitant]
     Dosage: 1-0-0
     Route: 065
  5. CITALOPRAM [Concomitant]
     Dosage: -0-1/2
     Route: 065
  6. TORASEMID [Concomitant]
     Dosage: 1-0-0
     Route: 065
  7. EBIXA [Concomitant]
     Dosage: 1-0-0
     Route: 065
  8. EBIXA [Concomitant]
     Dosage: -0-0
     Route: 065
  9. PANTOPRAZOLE [Concomitant]
     Dosage: 1-0-0
     Route: 065
  10. SILODOSIN [Concomitant]
     Dosage: 1-0-0
     Route: 065
  11. SYMBICORT [Concomitant]
     Dosage: 160/4.5 UG, 1-0-1 PUFF
     Route: 065
  12. TIOTROPIUM BROMIDE [Concomitant]
     Dosage: 2-0-0 PUFF
     Route: 065
  13. TIOTROPIUM BROMIDE [Concomitant]
     Dosage: 2.5, 1-0-1 PUFF
     Route: 065
  14. IBUPROFEN [Concomitant]
     Dosage: 1-0-1
     Route: 065
  15. PRADAXA [Concomitant]
     Dosage: 1-0-1
     Route: 065
  16. TAMSULOSIN [Concomitant]
     Dosage: 1-0-0
     Route: 065

REACTIONS (2)
  - Cerebral infarction [Recovering/Resolving]
  - Drug ineffective [Unknown]
